FAERS Safety Report 17216996 (Version 2)
Quarter: 2020Q1

REPORT INFORMATION
  Report Type: Spontaneous
  Country: US (occurrence: US)
  Receive Date: 20191231
  Receipt Date: 20200102
  Transmission Date: 20200409
  Serious: No
  Sender: FDA-Public Use
  Company Number: US-JNJFOC-20191224864

PATIENT
  Sex: Female
  Weight: 51.3 kg

DRUGS (2)
  1. TYLENOL [Suspect]
     Active Substance: ACETAMINOPHEN
     Indication: SLEEP DISORDER THERAPY
     Dosage: 1 OR 2 CAPLETS
     Route: 048
  2. TYLENOL PM [Suspect]
     Active Substance: ACETAMINOPHEN\DIPHENHYDRAMINE
     Indication: SLEEP DISORDER THERAPY
     Route: 048

REACTIONS (2)
  - Product use in unapproved indication [Unknown]
  - Product administration error [Unknown]
